FAERS Safety Report 23651414 (Version 2)
Quarter: 2024Q2

REPORT INFORMATION
  Report Type: Spontaneous
  Country: US (occurrence: US)
  Receive Date: 20240320
  Receipt Date: 20240405
  Transmission Date: 20240716
  Serious: Yes (Hospitalization, Other)
  Sender: FDA-Public Use
  Company Number: US-SANOFI-01978598

PATIENT
  Age: 77 Year
  Sex: Female

DRUGS (1)
  1. LOVENOX [Suspect]
     Active Substance: ENOXAPARIN SODIUM
     Indication: Coagulopathy
     Dosage: UNK

REACTIONS (2)
  - Lung neoplasm malignant [Unknown]
  - Leg amputation [Unknown]
